FAERS Safety Report 11111357 (Version 3)
Quarter: 2015Q2

REPORT INFORMATION
  Report Type: Report from Study
  Country: CA (occurrence: CA)
  Receive Date: 20150513
  Receipt Date: 20150527
  Transmission Date: 20150821
  Serious: Yes (Death, Other)
  Sender: FDA-Public Use
  Company Number: CA-ABBVIE-15P-028-1391311-00

PATIENT
  Sex: Male
  Weight: 46.76 kg

DRUGS (1)
  1. LUPRON DEPOT [Suspect]
     Active Substance: LEUPROLIDE ACETATE
     Indication: PROSTATE CANCER
     Route: 030
     Dates: start: 20130828

REACTIONS (4)
  - Death [Fatal]
  - Cerebrovascular accident [Fatal]
  - Malignant neoplasm progression [Fatal]
  - Influenza like illness [Fatal]
